FAERS Safety Report 18209102 (Version 1)
Quarter: 2020Q3

REPORT INFORMATION
  Report Type: Spontaneous
  Country: US (occurrence: US)
  Receive Date: 20200828
  Receipt Date: 20200828
  Transmission Date: 20201103
  Serious: No
  Sender: FDA-Public Use
  Company Number: US-PFIZER INC-2019443867

PATIENT
  Age: 75 Year
  Sex: Male
  Weight: 60.77 kg

DRUGS (12)
  1. EUTHYROX [Concomitant]
     Active Substance: LEVOTHYROXINE SODIUM
     Dosage: 175 MEQ, 1X/DAY
     Route: 048
     Dates: start: 20200707
  2. ADVAIR HFA [Concomitant]
     Active Substance: FLUTICASONE PROPIONATE\SALMETEROL XINAFOATE
     Dosage: (INHALE 1 PUFF 2 (TWO) TIMES PER DAY. RINSE MOUTH WITH WATER AFTER USE . DO NOT SWALLOW), 2X/DAY
  3. LEVOTHROID [Concomitant]
     Active Substance: LEVOTHYROXINE SODIUM
  4. SUTENT [Suspect]
     Active Substance: SUNITINIB MALATE
     Indication: RENAL CELL CARCINOMA
     Dosage: 50 MG, CYCLIC( 50 MG PO DAILY X 4 WEEKS WITH 2 WEEKS OFF)
     Route: 048
     Dates: start: 20180326
  5. COZAAR [Concomitant]
     Active Substance: LOSARTAN POTASSIUM
     Dosage: 25 MG, 1X/DAY
     Route: 048
  6. SYNTHROID [Concomitant]
     Active Substance: LEVOTHYROXINE SODIUM
  7. SUTENT [Suspect]
     Active Substance: SUNITINIB MALATE
     Dosage: 37.5 MG, DAILY 7.5 MG, CYCLIC(1 (ONE) TIME EACH DAY. TAKE WITH OR WITHOUT FOOD. DO NOT OPEN THE CAPS
     Route: 048
     Dates: start: 20191014, end: 202006
  8. VENTOLIN HFA [Concomitant]
     Active Substance: ALBUTEROL SULFATE
     Dosage: UNK,(INHALE 2 PUFFS IF NEEDED)
  9. KENALOG [Concomitant]
     Active Substance: TRIAMCINOLONE ACETONIDE
     Dosage: 1 ML, AS NEEDED(INJECT 1 ML INTO THE SHOULDER, THIGH, OR BUTTOCKS IF NEEDED)
  10. COREG [Concomitant]
     Active Substance: CARVEDILOL
     Dosage: 12.5 MG, 2X/DAY
     Route: 048
  11. ULTRAM [Concomitant]
     Active Substance: TRAMADOL HYDROCHLORIDE
     Indication: PAIN
     Dosage: 50 MG, 3X/DAY
     Route: 048
  12. DYAZIDE [Concomitant]
     Active Substance: HYDROCHLOROTHIAZIDE\TRIAMTERENE
     Dosage: 1 DF, ALTERNATE DAY(TRIAMTERENE 37.5 MGHYDROCHLOROTHIAZIDE 25 MG CAPSULE TAKE 1 CAPSULE BY MOUTH EVE
     Route: 048

REACTIONS (3)
  - Neoplasm progression [Unknown]
  - Blood creatinine increased [Unknown]
  - Anaemia [Unknown]
